FAERS Safety Report 26150846 (Version 1)
Quarter: 2025Q4

REPORT INFORMATION
  Report Type: Spontaneous
  Country: CH (occurrence: CH)
  Receive Date: 20251212
  Receipt Date: 20251212
  Transmission Date: 20260117
  Serious: Yes (Other)
  Sender: ACCORD
  Company Number: CH-Accord-517720

PATIENT
  Sex: Male

DRUGS (7)
  1. HYDROXYCHLOROQUINE [Suspect]
     Active Substance: HYDROXYCHLOROQUINE
     Indication: Placental disorder
     Dosage: HYDROXYCHLOROQUINE PO BID 5 MG/KG/DAY; INTRODUCED 12 WEEKS PRIOR TO A NEW CONCEPTION ATTEMPT
     Route: 064
  2. TACROLIMUS [Suspect]
     Active Substance: TACROLIMUS
     Indication: Placental disorder
     Dosage: PO BID FOR TROUGH LEVELS 6-8 NG/ML; INTRODUCED 12 WEEKS PRIOR TO A NEW CONCEPTION ATTEMPT
     Route: 064
  3. ASPIRIN [Suspect]
     Active Substance: ASPIRIN
     Indication: Placental disorder
     Dosage: LOW-DOSE; INTRODUCED 12 WEEKS PRIOR TO A NEW CONCEPTION ATTEMPT
     Route: 064
  4. AZATHIOPRINE [Suspect]
     Active Substance: AZATHIOPRINE
     Indication: Placental disorder
     Route: 064
  5. METHYLPREDNISOLONE [Suspect]
     Active Substance: METHYLPREDNISOLONE
     Indication: Placental disorder
     Dosage: INTRAVENOUS BOLUS AT EACH INFUSION; INTRODUCED 12 WEEKS PRIOR TO A NEW CONCEPTION ATTEMPT
     Route: 064
  6. PREDNISOLONE [Suspect]
     Active Substance: PREDNISOLONE
     Indication: Placental disorder
     Route: 064
  7. ASPIRIN [Suspect]
     Active Substance: ASPIRIN
     Indication: Thrombosis prophylaxis
     Dosage: LOW-DOSE; INTRODUCED 12 WEEKS PRIOR TO A NEW CONCEPTION ATTEMPT
     Route: 064

REACTIONS (2)
  - Renal impairment [Recovered/Resolved]
  - Foetal exposure during pregnancy [Unknown]
